FAERS Safety Report 16960175 (Version 1)
Quarter: 2019Q4

REPORT INFORMATION
  Report Type: Spontaneous
  Country: ZA (occurrence: ZA)
  Receive Date: 20191025
  Receipt Date: 20191025
  Transmission Date: 20200122
  Serious: Yes (Death, Hospitalization)
  Sender: FDA-Public Use
  Company Number: ZA-MACLEODS PHARMACEUTICALS US LTD-MAC2019023452

PATIENT

DRUGS (8)
  1. ZIDOVUDINE. [Concomitant]
     Active Substance: ZIDOVUDINE
     Indication: HIV INFECTION
     Dosage: 300 MILLIGRAM, BID
     Route: 065
  2. LAMIVUDINE. [Concomitant]
     Active Substance: LAMIVUDINE
     Indication: HIV INFECTION
     Dosage: 150 MILLIGRAM, BID
     Route: 065
  3. NEVIRAPINE  200 MG [Suspect]
     Active Substance: NEVIRAPINE
     Dosage: 200 MILLIGRAM, BID, DOSE INCREASED AFTER 14 DAYS
     Route: 065
  4. RISPERIDONE. [Concomitant]
     Active Substance: RISPERIDONE
     Indication: MANIA
     Dosage: 3 MILLIGRAM, QD
     Route: 065
  5. NEVIRAPINE  200 MG [Suspect]
     Active Substance: NEVIRAPINE
     Indication: HIV INFECTION
     Dosage: 200 MILLIGRAM, QD
     Route: 065
  6. NEVIRAPINE  200 MG [Suspect]
     Active Substance: NEVIRAPINE
     Dosage: UNK DOSE WAS INCREASED AFTER RASH WAS SETTLED
     Route: 065
  7. PENICILLIN [Concomitant]
     Active Substance: PENICILLIN
     Indication: PRODUCT USED FOR UNKNOWN INDICATION
     Dosage: UNK
     Route: 065
  8. SODIUM VALPROATE [Concomitant]
     Active Substance: VALPROATE SODIUM
     Indication: MANIA
     Dosage: 500 MILLIGRAM
     Route: 065

REACTIONS (4)
  - Stevens-Johnson syndrome [Fatal]
  - Renal failure [Fatal]
  - Toxic epidermal necrolysis [Fatal]
  - Infection [Fatal]
